FAERS Safety Report 5155313-5 (Version None)
Quarter: 2006Q4

REPORT INFORMATION
  Report Type: 
  Country: None (occurrence: None)
  Receive Date: 20061121
  Receipt Date: 20061113
  Transmission Date: 20070319
  Serious: Yes (Hospitalization)
  Sender: FDA-Public Use
  Company Number: SE-AMGEN-UK199974

PATIENT
  Sex: Female

DRUGS (12)
  1. KINERET [Suspect]
     Indication: RHEUMATOID ARTHRITIS
     Route: 058
     Dates: start: 20050408, end: 20050614
  2. ALVEDON [Concomitant]
     Route: 048
  3. LANSOPRAZOLE [Concomitant]
     Route: 048
  4. DESLORATADINE [Concomitant]
     Route: 048
  5. TRAMADOL HCL [Concomitant]
     Route: 048
  6. PRIMPERAN TAB [Concomitant]
     Route: 048
  7. ATARAX [Concomitant]
     Route: 048
  8. BETNOVATE [Concomitant]
     Route: 061
  9. ACETYLCYSTEINE [Concomitant]
     Route: 048
  10. ORUDIS [Concomitant]
     Route: 065
  11. VENTOLIN [Concomitant]
     Route: 055
  12. SUMATRIPTAN SUCCINATE [Concomitant]
     Route: 054

REACTIONS (4)
  - HYPERSENSITIVITY [None]
  - PHARYNGEAL OEDEMA [None]
  - PRURITUS [None]
  - RASH [None]
